FAERS Safety Report 21335156 (Version 1)
Quarter: 2022Q3

REPORT INFORMATION
  Report Type: Report from Study
  Country: US (occurrence: US)
  Receive Date: 20220915
  Receipt Date: 20220915
  Transmission Date: 20221027
  Serious: Yes (Other)
  Sender: FDA-Public Use
  Company Number: US-BRISTOL-MYERS SQUIBB COMPANY-2022-027371

PATIENT
  Age: 71 Year
  Sex: Female
  Weight: 107.05 kg

DRUGS (2)
  1. REVLIMID [Suspect]
     Active Substance: LENALIDOMIDE
     Indication: Plasma cell myeloma
     Route: 065
     Dates: start: 201708
  2. REVLIMID [Suspect]
     Active Substance: LENALIDOMIDE
     Indication: Illness
     Dosage: DAILY, A3690A EXPIRY DATE:30-JUN-2024
     Route: 048
     Dates: start: 201708

REACTIONS (9)
  - Muscle spasms [Unknown]
  - Nausea [Unknown]
  - Malaise [Unknown]
  - Rash [Unknown]
  - Fatigue [Unknown]
  - Blood iron decreased [Unknown]
  - Pigmentation disorder [Unknown]
  - Gastric infection [Recovered/Resolved]
  - Vertigo [Unknown]

NARRATIVE: CASE EVENT DATE: 20220422
